FAERS Safety Report 9243896 (Version 1)
Quarter: 2013Q1

REPORT INFORMATION
  Report Type: Spontaneous
  Country: US (occurrence: None)
  Receive Date: 20121123
  Receipt Date: 20121123
  Transmission Date: 20140127
  Serious: No
  Sender: FDA-Public Use
  Company Number: 362527

PATIENT
  Age: 50 Year
  Sex: Female

DRUGS (2)
  1. VICTOZA [Suspect]
     Indication: TYPE 1 DIABETES MELLITUS
     Route: 058
     Dates: start: 20121009
  2. HUMALOG (INSULIN LISPRO) [Concomitant]

REACTIONS (7)
  - Gastrooesophageal reflux disease [None]
  - Vomiting [None]
  - Nausea [None]
  - Diarrhoea [None]
  - Abdominal pain upper [None]
  - Decreased appetite [None]
  - Blood glucose increased [None]
